FAERS Safety Report 6839100-5 (Version None)
Quarter: 2010Q3

REPORT INFORMATION
  Report Type: 
  Country: None (occurrence: None)
  Receive Date: 20100714
  Receipt Date: 20100707
  Transmission Date: 20110219
  Serious: Yes (Hospitalization)
  Sender: FDA-Public Use
  Company Number: US-BIOGENIDEC-2010BI022912

PATIENT
  Age: 44 Year
  Sex: Male
  Weight: 58 kg

DRUGS (2)
  1. AVONEX [Suspect]
     Indication: MULTIPLE SCLEROSIS
     Route: 030
     Dates: start: 20000501, end: 20030901
  2. AVONEX [Suspect]
     Route: 030
     Dates: start: 20030901

REACTIONS (1)
  - MULTIPLE SCLEROSIS RELAPSE [None]
